FAERS Safety Report 4856063-2 (Version None)
Quarter: 2005Q4

REPORT INFORMATION
  Report Type: 
  Country: None (occurrence: None)
  Receive Date: 20051216
  Receipt Date: 20051209
  Transmission Date: 20060501
  Serious: Yes (Hospitalization)
  Sender: FDA-Public Use
  Company Number: FR-ABBOTT-05P-056-0319105-00

PATIENT
  Age: 58 Year
  Sex: Female

DRUGS (7)
  1. TARKA [Suspect]
     Indication: DRUG USE FOR UNKNOWN INDICATION
     Route: 048
     Dates: end: 20050304
  2. RILMENIDINE [Concomitant]
     Indication: DRUG USE FOR UNKNOWN INDICATION
  3. TELITHROMYCIN [Suspect]
     Indication: BRONCHITIS ACUTE
     Route: 048
     Dates: start: 20050220, end: 20050228
  4. PRAVASTATIN [Concomitant]
     Indication: DRUG USE FOR UNKNOWN INDICATION
  5. FELODIPINE [Concomitant]
     Indication: DRUG USE FOR UNKNOWN INDICATION
  6. CICLETANINE CHLORHYDRATE [Concomitant]
     Indication: DRUG USE FOR UNKNOWN INDICATION
  7. INSULIN [Concomitant]
     Indication: DRUG USE FOR UNKNOWN INDICATION

REACTIONS (5)
  - BRADYCARDIA [None]
  - DRUG INTERACTION [None]
  - HYPERKALAEMIA [None]
  - MALAISE [None]
  - MYALGIA [None]
